FAERS Safety Report 16624029 (Version 3)
Quarter: 2019Q3

REPORT INFORMATION
  Report Type: Spontaneous
  Country: AR (occurrence: AR)
  Receive Date: 20190724
  Receipt Date: 20190823
  Transmission Date: 20191004
  Serious: Yes (Death, Other)
  Sender: FDA-Public Use
  Company Number: AR-ABBVIE-19K-007-2864819-00

PATIENT
  Age: 68 Year
  Sex: Female

DRUGS (1)
  1. HUMIRA [Suspect]
     Active Substance: ADALIMUMAB
     Indication: RHEUMATOID ARTHRITIS
     Route: 058
     Dates: start: 201502

REACTIONS (6)
  - Venous thrombosis limb [Unknown]
  - Acute myocardial infarction [Unknown]
  - Acute pulmonary oedema [Fatal]
  - Haemodynamic instability [Unknown]
  - General physical health deterioration [Fatal]
  - Atrioventricular block [Unknown]
